FAERS Safety Report 7582299-6 (Version None)
Quarter: 2011Q2

REPORT INFORMATION
  Report Type: 
  Country: None (occurrence: None)
  Receive Date: 20110630
  Receipt Date: 20110516
  Transmission Date: 20111010
  Serious: Yes (Other)
  Sender: FDA-Public Use
  Company Number: US-BAYER-201029764NA

PATIENT
  Age: 21 Year
  Sex: Female
  Weight: 52.154 kg

DRUGS (8)
  1. IMITREX [Concomitant]
     Indication: HEADACHE
     Dosage: 50 MG, UNK
     Dates: start: 20080707
  2. YAZ [Suspect]
     Indication: ACNE
     Dosage: UNK UNK, QD
     Dates: start: 20070101, end: 20080101
  3. EFFEXOR [Concomitant]
  4. YAZ [Suspect]
     Indication: PREMENSTRUAL SYNDROME
  5. SINGULAIR [Concomitant]
     Indication: ASTHMA
  6. DITROPAN [Concomitant]
     Indication: HYPERTONIC BLADDER
     Route: 048
  7. YAZ [Suspect]
     Indication: CONTRACEPTION
     Dosage: QD
     Route: 048
     Dates: start: 20080610, end: 20091221
  8. ALBUTEROL SULFATE AUTOHALER [Concomitant]

REACTIONS (4)
  - CHOLECYSTITIS CHRONIC [None]
  - GALLBLADDER PAIN [None]
  - GALLBLADDER DISORDER [None]
  - ABDOMINAL PAIN UPPER [None]
